FAERS Safety Report 11821917 (Version 4)
Quarter: 2018Q2

REPORT INFORMATION
  Report Type: Spontaneous
  Country: US (occurrence: US)
  Receive Date: 20151210
  Receipt Date: 20180404
  Transmission Date: 20180711
  Serious: Yes (Death, Hospitalization)
  Sender: FDA-Public Use
  Company Number: US-JNJFOC-20150700770

PATIENT
  Sex: Male

DRUGS (18)
  1. NORVASC [Concomitant]
     Active Substance: AMLODIPINE BESYLATE
  2. ALLOPURINOL. [Concomitant]
     Active Substance: ALLOPURINOL
  3. TYLENOL [Concomitant]
     Active Substance: ACETAMINOPHEN
  4. VITAMINS NOS [Concomitant]
     Active Substance: VITAMINS
  5. TRIAMTERENE. [Concomitant]
     Active Substance: TRIAMTERENE
  6. IMBRUVICA [Suspect]
     Active Substance: IBRUTINIB
     Indication: CHRONIC LYMPHOCYTIC LEUKAEMIA
     Route: 048
     Dates: start: 20140924
  7. TAMSULOSIN [Concomitant]
     Active Substance: TAMSULOSIN
  8. TETRYZOLINE HYDROCHLORIDE [Concomitant]
     Active Substance: TETRAHYDROZOLINE HYDROCHLORIDE
  9. LORAZEPAM. [Concomitant]
     Active Substance: LORAZEPAM
  10. LASIX [Concomitant]
     Active Substance: FUROSEMIDE
  11. PRILOSEC [Concomitant]
     Active Substance: OMEPRAZOLE MAGNESIUM
  12. ALBUTEROL. [Concomitant]
     Active Substance: ALBUTEROL
  13. HCTZ [Concomitant]
     Active Substance: HYDROCHLOROTHIAZIDE
  14. POTASSIUM [Concomitant]
     Active Substance: POTASSIUM
  15. PEPCID [Concomitant]
     Active Substance: FAMOTIDINE
  16. BIFIDOBACTERIUM LACTIS [Concomitant]
     Active Substance: BIFIDOBACTERIUM ANIMALIS LACTIS
  17. IMBRUVICA [Suspect]
     Active Substance: IBRUTINIB
     Indication: CHRONIC LYMPHOCYTIC LEUKAEMIA
     Dosage: QOD
     Route: 048
     Dates: start: 20171019
  18. FLUTICASONE. [Concomitant]
     Active Substance: FLUTICASONE

REACTIONS (3)
  - Pneumonia [Fatal]
  - Contusion [Unknown]
  - Muscular weakness [Unknown]
